FAERS Safety Report 5261872-4 (Version None)
Quarter: 2007Q1

REPORT INFORMATION
  Report Type: 
  Country: None (occurrence: None)
  Receive Date: 20070310
  Receipt Date: 20070228
  Transmission Date: 20070707
  Serious: Yes (Hospitalization, Disabling)
  Sender: FDA-Public Use
  Company Number: 2006UW25762

PATIENT
  Sex: Female
  Weight: 72.7 kg

DRUGS (2)
  1. SEROQUEL [Suspect]
     Indication: POST-TRAUMATIC STRESS DISORDER
     Route: 048
     Dates: end: 20050101
  2. SEROQUEL [Suspect]
     Route: 048
     Dates: end: 20050101

REACTIONS (2)
  - DIABETES MELLITUS [None]
  - KNEE OPERATION [None]
